FAERS Safety Report 13250870 (Version 2)
Quarter: 2021Q4

REPORT INFORMATION
  Report Type: Other
  Country: FR (occurrence: FR)
  Receive Date: 20170220
  Receipt Date: 20211020
  Transmission Date: 20220303
  Serious: Yes (Hospitalization, Other)
  Sender: FDA-Public Use
  Company Number: FR-ROCHE-1891573

PATIENT

DRUGS (3)
  1. BEVACIZUMAB [Suspect]
     Active Substance: BEVACIZUMAB
     Indication: Ovarian cancer
     Dosage: 15 MG/KG EVERY 3 WEEKS OR EQUIVALENT (87%), 38 (8%) RECEIVED DOSE OF 7.5 MG/KG EVERY 3 WEEKS AND 25
     Route: 065
  2. CARBOPLATIN [Concomitant]
     Active Substance: CARBOPLATIN
  3. PACLITAXEL [Concomitant]
     Active Substance: PACLITAXEL

REACTIONS (41)
  - Cardiovascular disorder [Unknown]
  - Cerebrovascular accident [Unknown]
  - Cardiac failure [Unknown]
  - Arrhythmia [Unknown]
  - Posterior reversible encephalopathy syndrome [Unknown]
  - Phlebitis [Unknown]
  - Gastrointestinal perforation [Unknown]
  - Cardiotoxicity [Unknown]
  - Pulmonary embolism [Unknown]
  - Enterocutaneous fistula [Unknown]
  - Pulmonary hypertension [Unknown]
  - Cerebrovascular accident [Unknown]
  - Intestinal obstruction [Unknown]
  - Venous thrombosis [Unknown]
  - Impaired healing [Unknown]
  - Decubitus ulcer [Unknown]
  - Haemorrhage [Unknown]
  - Hypertension [Unknown]
  - Fatigue [Unknown]
  - Epistaxis [Unknown]
  - Gingival bleeding [Unknown]
  - Pain [Unknown]
  - Headache [Unknown]
  - Arthralgia [Unknown]
  - Nausea [Unknown]
  - Neuropathy peripheral [Unknown]
  - Anaemia [Unknown]
  - Vomiting [Unknown]
  - Thrombocytopenia [Unknown]
  - Mucosal inflammation [Unknown]
  - Alopecia [Unknown]
  - Subileus [Unknown]
  - Nail toxicity [Unknown]
  - Infusion related reaction [Unknown]
  - Proteinuria [Unknown]
  - Constipation [Unknown]
  - Abdominal distension [Unknown]
  - Abdominal pain upper [Unknown]
  - Perineal fistula [Unknown]
  - Umbilical hernia [Unknown]
  - Palpitations [Unknown]
